FAERS Safety Report 13257091 (Version 1)
Quarter: 2017Q1

REPORT INFORMATION
  Report Type: Spontaneous
  Country: US (occurrence: US)
  Receive Date: 20170221
  Receipt Date: 20170221
  Transmission Date: 20170428
  Serious: No
  Sender: FDA-Public Use
  Company Number: US-ALLERGAN-1661746US

PATIENT
  Sex: Female

DRUGS (1)
  1. FLUOROMETHOLONE, 0.1% [Suspect]
     Active Substance: FLUOROMETHOLONE
     Indication: INFECTION
     Dosage: UNK
     Route: 047
     Dates: start: 201605

REACTIONS (2)
  - Off label use [Unknown]
  - Drug ineffective [Unknown]
